FAERS Safety Report 17599937 (Version 1)
Quarter: 2020Q1

REPORT INFORMATION
  Report Type: Report from Study
  Country: CA (occurrence: CA)
  Receive Date: 20200330
  Receipt Date: 20200330
  Transmission Date: 20200409
  Serious: Yes (Hospitalization, Other)
  Sender: FDA-Public Use
  Company Number: CA-009507513-1908CAN008829

PATIENT
  Age: 78 Year
  Sex: Male
  Weight: 71 kg

DRUGS (7)
  1. PEMBROLIZUMAB. [Suspect]
     Active Substance: PEMBROLIZUMAB
     Dosage: 200 MILLIGRAM, Q3W(STRENGTH: 2MG/KG)
     Route: 042
     Dates: start: 2020, end: 2020
  2. LASIX [Concomitant]
     Active Substance: FUROSEMIDE
     Dosage: 20 MILLIGRAM, QAM
     Route: 048
  3. PEMBROLIZUMAB. [Suspect]
     Active Substance: PEMBROLIZUMAB
     Dosage: 200 MILLIGRAM, Q3W(STRENGTH: 2MG/KG)
     Route: 042
     Dates: start: 2019, end: 2019
  4. PEMBROLIZUMAB. [Suspect]
     Active Substance: PEMBROLIZUMAB
     Indication: TRANSITIONAL CELL CARCINOMA
     Dosage: 200 MILLIGRAM, Q3W(STRENGTH: 2MG/KG)
     Route: 042
     Dates: start: 20190821, end: 2019
  5. PEMBROLIZUMAB. [Suspect]
     Active Substance: PEMBROLIZUMAB
     Dosage: 200 MILLIGRAM, Q3W(STRENGTH: 2MG/KG)
     Route: 042
     Dates: start: 2019, end: 2019
  6. PEMBROLIZUMAB. [Suspect]
     Active Substance: PEMBROLIZUMAB
     Dosage: 200 MILLIGRAM, Q3W(STRENGTH: 2MG/KG)
     Route: 042
     Dates: start: 2019, end: 2019
  7. PEMBROLIZUMAB. [Suspect]
     Active Substance: PEMBROLIZUMAB
     Dosage: 200 MILLIGRAM, Q3W(STRENGTH: 2MG/KG)
     Route: 042
     Dates: start: 20191205

REACTIONS (35)
  - Malaise [Unknown]
  - Oedema peripheral [Unknown]
  - Pulse abnormal [Unknown]
  - Cortisol decreased [Recovered/Resolved]
  - Dry mouth [Recovered/Resolved]
  - Anxiety [Unknown]
  - Diarrhoea [Unknown]
  - Asthenia [Unknown]
  - Pulse abnormal [Unknown]
  - Blood pressure increased [Unknown]
  - Erythema [Unknown]
  - Dizziness [Unknown]
  - Rash [Unknown]
  - Fatigue [Unknown]
  - Oedema [Unknown]
  - Hypogeusia [Unknown]
  - Pain [Unknown]
  - Rash [Unknown]
  - Rash [Recovered/Resolved]
  - Dyspnoea [Unknown]
  - Depression [Unknown]
  - Anxiety [Unknown]
  - Pruritus [Unknown]
  - Pulse abnormal [Unknown]
  - Musculoskeletal pain [Unknown]
  - Insomnia [Unknown]
  - Blood pressure abnormal [Unknown]
  - Cancer pain [Unknown]
  - Conjunctival haemorrhage [Unknown]
  - Stress [Unknown]
  - Decreased appetite [Unknown]
  - Malignant neoplasm progression [Unknown]
  - Sleep disorder [Unknown]
  - Somnolence [Unknown]
  - Fatigue [Unknown]

NARRATIVE: CASE EVENT DATE: 2019
